FAERS Safety Report 4750993-8 (Version None)
Quarter: 2005Q3

REPORT INFORMATION
  Report Type: 
  Country: None (occurrence: None)
  Receive Date: 20050822
  Receipt Date: 20050810
  Transmission Date: 20060218
  Serious: Yes (Other)
  Sender: FDA-Public Use
  Company Number: 2005113209

PATIENT
  Age: 22 Month
  Sex: Female
  Weight: 13.6079 kg

DRUGS (1)
  1. BENADRYL [Suspect]
     Indication: SEASONAL ALLERGY
     Dosage: 3 TIMES A DAY, ORAL TOPICAL
     Route: 048
     Dates: start: 20050501, end: 20050701

REACTIONS (4)
  - EYE INFECTION [None]
  - EYE SWELLING [None]
  - FUNGAL INFECTION [None]
  - STAPHYLOCOCCAL INFECTION [None]
